FAERS Safety Report 9646553 (Version 2)
Quarter: 2013Q4

REPORT INFORMATION
  Report Type: Report from Study
  Country: US (occurrence: US)
  Receive Date: 20131025
  Receipt Date: 20131025
  Transmission Date: 20140711
  Serious: Yes (Hospitalization, Other)
  Sender: FDA-Public Use
  Company Number: US-ABBVIE-13P-163-1127432-00

PATIENT
  Age: 28 Year
  Sex: Female
  Weight: 45.85 kg

DRUGS (8)
  1. HUMIRA [Suspect]
     Indication: COLITIS ULCERATIVE
     Dosage: 1ST PART OF LOADING DOSE: 80MG ON 7/27/2013
     Dates: start: 20130727, end: 20130727
  2. HUMIRA [Suspect]
  3. ASACOL [Concomitant]
     Indication: COLITIS ULCERATIVE
  4. PREDNISONE [Concomitant]
     Indication: COLITIS ULCERATIVE
     Route: 048
  5. UNKNOWN MEDICATION [Concomitant]
     Indication: GASTROOESOPHAGEAL REFLUX DISEASE
     Dosage: DAILY
  6. XANAX [Concomitant]
     Indication: PRODUCT USED FOR UNKNOWN INDICATION
  7. PROTONIX [Concomitant]
     Indication: PRODUCT USED FOR UNKNOWN INDICATION
  8. REWASA [Concomitant]
     Indication: PRODUCT USED FOR UNKNOWN INDICATION

REACTIONS (5)
  - Infection [Recovered/Resolved]
  - Pain [Recovered/Resolved]
  - Pyrexia [Recovering/Resolving]
  - Chills [Not Recovered/Not Resolved]
  - Decreased appetite [Unknown]
